FAERS Safety Report 21064095 (Version 1)
Quarter: 2022Q3

REPORT INFORMATION
  Report Type: Spontaneous
  Country: US (occurrence: None)
  Receive Date: 20220708
  Receipt Date: 20220708
  Transmission Date: 20221027
  Serious: Yes (Life-Threatening, Disabling)
  Sender: FDA-Public Use
  Company Number: None

PATIENT
  Age: 83 Year
  Sex: Female
  Weight: 57.15 kg

DRUGS (4)
  1. GADAVIST [Suspect]
     Active Substance: GADOBUTROL
     Indication: Magnetic resonance imaging
     Route: 042
     Dates: start: 20220216
  2. UNSPECIFIED INGREDIENT [Concomitant]
     Active Substance: UNSPECIFIED INGREDIENT
  3. IRON [Concomitant]
     Active Substance: IRON
  4. ASPIRIN [Concomitant]
     Active Substance: ASPIRIN

REACTIONS (9)
  - Peripheral swelling [None]
  - Wheelchair user [None]
  - Peripheral swelling [None]
  - Pain in extremity [None]
  - Gait disturbance [None]
  - Asthenia [None]
  - Hypokinesia [None]
  - Fall [None]
  - Formication [None]

NARRATIVE: CASE EVENT DATE: 20220216
